FAERS Safety Report 5217793-6 (Version None)
Quarter: 2007Q1

REPORT INFORMATION
  Report Type: 
  Country: None (occurrence: None)
  Receive Date: 20061130
  Receipt Date: 20060815
  Transmission Date: 20070707
  Serious: Yes (Hospitalization)
  Sender: FDA-Public Use
  Company Number: US200608005987

PATIENT
  Sex: 0
  Weight: 79.8 kg

DRUGS (1)
  1. ZYPREXA [Suspect]
     Dosage: 5 MG
     Dates: start: 20000101

REACTIONS (2)
  - GLUCOSE TOLERANCE IMPAIRED [None]
  - PANCREATITIS [None]
